FAERS Safety Report 8786718 (Version 1)
Quarter: 2012Q4

REPORT INFORMATION
  Report Type: 
  Country: US (occurrence: US)
  Receive Date: 20120914
  Receipt Date: 20120914
  Transmission Date: 20130627
  Serious: Yes (Death, Other)
  Sender: FDA-Public Use
  Company Number: US-ROCHE-1110073

PATIENT
  Sex: Male

DRUGS (3)
  1. TARCEVA [Suspect]
     Indication: PANCREATIC CARCINOMA
     Route: 065
  2. XELODA [Suspect]
     Indication: PRODUCT USED FOR UNKNOWN INDICATION
     Route: 065
  3. OXALIPLATIN [Concomitant]

REACTIONS (3)
  - Death [Fatal]
  - Metastases to lung [Unknown]
  - Malaise [Unknown]
